FAERS Safety Report 5023228-9 (Version None)
Quarter: 2006Q2

REPORT INFORMATION
  Report Type: 
  Country: None (occurrence: None)
  Receive Date: 20060128
  Receipt Date: 20060131
  Transmission Date: 20061013
  Serious: No
  Sender: FDA-Public Use
  Company Number: 012093

PATIENT
  Age: 52 Year
  Sex: Female

DRUGS (17)
  1. PRIALT [Suspect]
     Indication: PAIN
     Dosage: 0.05 UG, ONCE/HOUR, INTRATHECAL
     Route: 037
     Dates: start: 20050303
  2. ZOMIG [Concomitant]
  3. AEROBID [Concomitant]
  4. ALBUTEROL [Concomitant]
  5. SOMA [Concomitant]
  6. PALLADONE [Concomitant]
  7. DILAUDID [Concomitant]
  8. LASIX [Concomitant]
  9. POTASSIUM CHLORIDE [Concomitant]
  10. LEVOTHYROXINE SODIUM [Concomitant]
  11. TOPAMAX [Concomitant]
  12. CYMBALTA [Concomitant]
  13. BENADRYL [Concomitant]
  14. CLARITIN [Concomitant]
  15. LIDOCAINE [Concomitant]
  16. EPIPEN /00003901/ (EPINEPHRINE) [Concomitant]
  17. ZICAM (HOMEOPATICS NOS) [Concomitant]

REACTIONS (13)
  - ARTHRALGIA [None]
  - BLOOD THYROID STIMULATING HORMONE DECREASED [None]
  - BONE PAIN [None]
  - COORDINATION ABNORMAL [None]
  - DYSPHAGIA [None]
  - FACE OEDEMA [None]
  - FALL [None]
  - MEMORY IMPAIRMENT [None]
  - MIGRAINE [None]
  - NEURALGIA [None]
  - OEDEMA PERIPHERAL [None]
  - PAIN [None]
  - SOMNOLENCE [None]
